FAERS Safety Report 9439669 (Version 1)
Quarter: 2013Q3

REPORT INFORMATION
  Report Type: Spontaneous
  Country: US (occurrence: US)
  Receive Date: 20130805
  Receipt Date: 20130805
  Transmission Date: 20140515
  Serious: No
  Sender: FDA-Public Use
  Company Number: US-PFIZER INC-2013226550

PATIENT
  Age: 19 Year
  Sex: Female
  Weight: 68.03 kg

DRUGS (1)
  1. PRISTIQ [Suspect]
     Indication: ANXIETY
     Dosage: UNK, 1X/DAY
     Route: 048
     Dates: start: 20130801

REACTIONS (2)
  - Off label use [Unknown]
  - Somnolence [Not Recovered/Not Resolved]
